FAERS Safety Report 21158760 (Version 1)
Quarter: 2022Q3

REPORT INFORMATION
  Report Type: Report from Study
  Country: ES (occurrence: ES)
  Receive Date: 20220802
  Receipt Date: 20220802
  Transmission Date: 20221026
  Serious: Yes (Other)
  Sender: FDA-Public Use
  Company Number: ES-ABBVIE-22K-144-4487407-00

PATIENT
  Age: 39 Year
  Sex: Male

DRUGS (1)
  1. TESTOSTERONE [Suspect]
     Active Substance: TESTOSTERONE
     Indication: Product used for unknown indication
     Route: 061

REACTIONS (6)
  - Chest discomfort [Recovered/Resolved]
  - Cough [Recovered/Resolved]
  - Eyelid oedema [Recovered/Resolved]
  - Tongue pruritus [Recovered/Resolved]
  - Eye pruritus [Recovered/Resolved]
  - Rash erythematous [Recovered/Resolved]
